FAERS Safety Report 5371199-8 (Version None)
Quarter: 2007Q2

REPORT INFORMATION
  Report Type: 
  Country: None (occurrence: None)
  Receive Date: 20070615
  Receipt Date: 20060524
  Transmission Date: 20071010
  Serious: Yes (Other)
  Sender: FDA-Public Use
  Company Number: 200613974US

PATIENT
  Age: 88 Year
  Sex: Male
  Weight: 75.45 kg

DRUGS (11)
  1. LANTUS [Suspect]
     Indication: DIABETES MELLITUS NON-INSULIN-DEPENDENT
     Dosage: 16 IU
     Dates: start: 20060101, end: 20060502
  2. LANTUS [Suspect]
     Indication: DIABETES MELLITUS NON-INSULIN-DEPENDENT
     Dosage: 14 IU
     Dates: start: 20060503
  3. LANTUS [Suspect]
     Indication: DIABETES MELLITUS NON-INSULIN-DEPENDENT
     Dosage: 12 IU QD SC
     Route: 058
     Dates: start: 20060505
  4. OPTICLIK [Suspect]
     Indication: DIABETES MELLITUS NON-INSULIN-DEPENDENT
     Dates: start: 20060324
  5. CLONAZEPAM [Concomitant]
  6. LANOXIN [Concomitant]
  7. COREG [Concomitant]
  8. AMARYL [Concomitant]
  9. NEURONTIN [Concomitant]
  10. TRAMADOL HCL [Concomitant]
  11. LISINOPRIL [Concomitant]

REACTIONS (4)
  - BLOOD GLUCOSE DECREASED [None]
  - FATIGUE [None]
  - HYPOGLYCAEMIA [None]
  - SOMNOLENCE [None]
